FAERS Safety Report 18880982 (Version 1)
Quarter: 2021Q1

REPORT INFORMATION
  Report Type: Spontaneous
  Country: JP (occurrence: JP)
  Receive Date: 20210211
  Receipt Date: 20210211
  Transmission Date: 20210420
  Serious: Yes (Hospitalization, Disabling, Other)
  Sender: FDA-Public Use
  Company Number: JP-B.I. PHARMACEUTICALS,INC./RIDGEFIELD-2021-BI-082677

PATIENT
  Age: 84 Year
  Sex: Female

DRUGS (9)
  1. BUPRENORPHINE TRANSDERMAL SYSTEM [Suspect]
     Active Substance: BUPRENORPHINE
     Indication: PAIN
  2. BUPRENORPHINE TRANSDERMAL SYSTEM [Suspect]
     Active Substance: BUPRENORPHINE
     Indication: BACK PAIN
     Dosage: 5 MCG, Q1H
     Route: 062
     Dates: start: 20120822, end: 20120903
  3. MOBIC [Suspect]
     Active Substance: MELOXICAM
     Indication: OSTEOPOROSIS
  4. MOBIC [Suspect]
     Active Substance: MELOXICAM
     Indication: ARTHRALGIA
     Dosage: 10 MG, DAILY
     Route: 048
     Dates: start: 20110511, end: 20120903
  5. CARBOCAINE [Concomitant]
     Active Substance: MEPIVACAINE HYDROCHLORIDE
     Indication: PAIN
     Dosage: 3 AMPULE, WEEKLY
     Route: 042
     Dates: start: 20110511, end: 20120828
  6. MOBIC [Suspect]
     Active Substance: MELOXICAM
     Indication: NECK PAIN
  7. LYRICA [Suspect]
     Active Substance: PREGABALIN
     Indication: NEURALGIA
     Dosage: 25 MG, DAILY
     Route: 048
     Dates: start: 20120213, end: 20120903
  8. WARKMIN [Suspect]
     Active Substance: ALFACALCIDOL
     Indication: OSTEOPOROSIS
     Dosage: 1.0 MCG, DAILY
     Route: 048
     Dates: start: 20110511, end: 20120903
  9. PRIMPERAN [Suspect]
     Active Substance: METOCLOPRAMIDE HYDROCHLORIDE
     Indication: VOMITING
     Dosage: 15 MG, DAILY
     Route: 048
     Dates: start: 20120822, end: 20120903

REACTIONS (2)
  - Constipation [Recovered/Resolved]
  - Intestinal obstruction [Recovered/Resolved]

NARRATIVE: CASE EVENT DATE: 20120910
